FAERS Safety Report 7199300-4 (Version None)
Quarter: 2010Q4

REPORT INFORMATION
  Report Type: 
  Country: None (occurrence: None)
  Receive Date: 20101228
  Receipt Date: 20101125
  Transmission Date: 20110411
  Serious: Yes (Death, Hospitalization)
  Sender: FDA-Public Use
  Company Number: JP-BAYER-200915044BYL

PATIENT
  Sex: Female
  Weight: 47 kg

DRUGS (12)
  1. NEXAVAR [Suspect]
     Indication: HEPATIC NEOPLASM MALIGNANT
     Dosage: 400 MG (DAILY DOSE), , ORAL
     Route: 048
     Dates: start: 20090807, end: 20091018
  2. NEXAVAR [Suspect]
     Route: 048
     Dates: start: 20091018, end: 20091115
  3. URSO 250 [Concomitant]
     Dosage: SINCE BEFORE ADMINISTRATION
     Route: 048
  4. GLYCYRON [Concomitant]
     Dosage: SINCE BEFORE ADMINISTRATION
     Route: 048
  5. ULCERLMIN [Concomitant]
     Indication: GASTRITIS PROPHYLAXIS
     Dosage: SINCE BEFORE ADMINISTRATION
     Route: 048
  6. NU-LOTAN [Concomitant]
     Dosage: SINCE BEFORE ADMINISTRATION
     Route: 048
     Dates: end: 20090904
  7. NORVASC [Concomitant]
     Dosage: SINCE BEFORE ADMINISTRATION
     Route: 048
     Dates: end: 20090904
  8. UREPEARL [Concomitant]
     Indication: PROPHYLAXIS
     Dosage: SINCE BEFORE ADMINISTRATION
     Route: 061
  9. PARIET [Concomitant]
     Indication: GASTRITIS PROPHYLAXIS
     Dosage: SINCE BEFORE ADMINISTRATION
     Route: 048
  10. PARIET [Concomitant]
     Indication: GASTROINTESTINAL HAEMORRHAGE
  11. LASIX [Concomitant]
     Indication: ASCITES
     Dosage: SINCE BEFORE ADMINISTRATION
     Route: 048
  12. ALDACTONE [Concomitant]
     Indication: ASCITES
     Dosage: SINCE BEFORE ADMINISTRATION
     Route: 048

REACTIONS (14)
  - ALOPECIA [None]
  - ASCITES [None]
  - DIARRHOEA [None]
  - DYSPHONIA [None]
  - GASTROINTESTINAL HAEMORRHAGE [None]
  - HEPATIC FUNCTION ABNORMAL [None]
  - HEPATIC NEOPLASM MALIGNANT [None]
  - HYPERAMMONAEMIA [None]
  - HYPERAMYLASAEMIA [None]
  - HYPOPHOSPHATAEMIA [None]
  - MALAISE [None]
  - PALMAR-PLANTAR ERYTHRODYSAESTHESIA SYNDROME [None]
  - PYREXIA [None]
  - RASH [None]
